FAERS Safety Report 7589801-9 (Version None)
Quarter: 2011Q3

REPORT INFORMATION
  Report Type: 
  Country: None (occurrence: None)
  Receive Date: 20110705
  Receipt Date: 20110624
  Transmission Date: 20111222
  Serious: Yes (Hospitalization)
  Sender: FDA-Public Use
  Company Number: GR-PFIZER INC-2011143739

PATIENT
  Age: 63 Year
  Sex: Male

DRUGS (1)
  1. SUNITINIB MALATE [Suspect]
     Indication: RENAL CELL CARCINOMA
     Dosage: 50 MG, 1X/DAY (CYCLES 4 WKS ON, 2 WKS OFF)

REACTIONS (5)
  - HAEMATEMESIS [None]
  - HAEMATOCRIT DECREASED [None]
  - EPISTAXIS [None]
  - MELAENA [None]
  - HYPOVOLAEMIC SHOCK [None]
